FAERS Safety Report 6820218-8 (Version None)
Quarter: 2010Q3

REPORT INFORMATION
  Report Type: 
  Country: None (occurrence: None)
  Receive Date: 20100707
  Receipt Date: 20100629
  Transmission Date: 20110219
  Serious: Yes (Hospitalization)
  Sender: FDA-Public Use
  Company Number: US-BAYER-201026648NA

PATIENT
  Age: 79 Year
  Sex: Female

DRUGS (1)
  1. AVELOX [Suspect]
     Indication: NASOPHARYNGITIS
     Dosage: THE DRUG WAS TAKEN WITH FOOD
     Dates: start: 20100319

REACTIONS (1)
  - CARDIAC ARREST [None]
